FAERS Safety Report 26164929 (Version 2)
Quarter: 2025Q4

REPORT INFORMATION
  Report Type: Report from Study
  Country: US (occurrence: US)
  Receive Date: 20251216
  Receipt Date: 20251218
  Transmission Date: 20260118
  Serious: Yes (Other)
  Sender: JOHNSON AND JOHNSON
  Company Number: US-JNJFOC-20251208853

PATIENT
  Age: 71 Year
  Sex: Female

DRUGS (2)
  1. GUSELKUMAB [Suspect]
     Active Substance: GUSELKUMAB
     Indication: Psoriasis
  2. GUSELKUMAB [Suspect]
     Active Substance: GUSELKUMAB
     Indication: Psoriatic arthropathy

REACTIONS (6)
  - Knee arthroplasty [Unknown]
  - Needle issue [Unknown]
  - Product dose omission issue [Unknown]
  - Injection site haemorrhage [Unknown]
  - Condition aggravated [Unknown]
  - Pain [Unknown]

NARRATIVE: CASE EVENT DATE: 20251204
